FAERS Safety Report 7884556-2 (Version None)
Quarter: 2011Q4

REPORT INFORMATION
  Report Type: 
  Country: None (occurrence: None)
  Receive Date: 20111102
  Receipt Date: 20111027
  Transmission Date: 20120403
  Serious: Yes (Hospitalization)
  Sender: FDA-Public Use
  Company Number: DE-AMGEN-DEUSP2011052381

PATIENT
  Age: 80 Year
  Sex: Female
  Weight: 53 kg

DRUGS (9)
  1. KALINOR                            /00031402/ [Concomitant]
  2. LEVOTHYROXINE SODIUM [Concomitant]
  3. NPLATE [Suspect]
     Indication: IDIOPATHIC THROMBOCYTOPENIC PURPURA
     Dosage: UNK UNK, QWK
     Route: 058
     Dates: start: 20100901, end: 20110412
  4. PANTOPRAZOL                        /01263202/ [Concomitant]
     Dosage: 40 MUG, UNK
     Route: 048
  5. ALENDRONATE SODIUM [Concomitant]
     Dosage: 20 G, UNK
     Route: 048
  6. DURAGESIC-100 [Concomitant]
     Dosage: 100 MUG, UNK
  7. RAMIPRIL [Concomitant]
     Dosage: UNK UNK, ONE TIME DOSE
     Route: 048
  8. AMLODIPINE BESYLATE [Concomitant]
     Dosage: 5 MG, UNK
     Route: 048
  9. PREDNISOLONE [Concomitant]

REACTIONS (8)
  - PORTAL VEIN THROMBOSIS [None]
  - DEPRESSION [None]
  - BONE CYST [None]
  - PNEUMONIA [None]
  - SPLENOMEGALY [None]
  - ASCITES [None]
  - FALL [None]
  - LACERATION [None]
